FAERS Safety Report 5844337-8 (Version None)
Quarter: 2008Q3

REPORT INFORMATION
  Report Type: 
  Country: None (occurrence: None)
  Receive Date: 20080731
  Receipt Date: 20080423
  Transmission Date: 20090109
  Serious: No
  Sender: FDA-Public Use
  Company Number: US200804007060

PATIENT
  Age: 76 Year
  Sex: Female
  Weight: 113.4 kg

DRUGS (11)
  1. BYETTA [Suspect]
     Indication: TYPE 2 DIABETES MELLITUS
     Dosage: 5 UG, 2/D, SUBCUTANEOUS, 10 UG, 2/D, SUBCUTANEOUS, 10 UG, DAILY (1/D), SUBCUTANEOUS
     Route: 058
     Dates: start: 20080201, end: 20080301
  2. BYETTA [Suspect]
     Indication: TYPE 2 DIABETES MELLITUS
     Dosage: 5 UG, 2/D, SUBCUTANEOUS, 10 UG, 2/D, SUBCUTANEOUS, 10 UG, DAILY (1/D), SUBCUTANEOUS
     Route: 058
     Dates: start: 20080301, end: 20080401
  3. BYETTA [Suspect]
     Indication: TYPE 2 DIABETES MELLITUS
     Dosage: 5 UG, 2/D, SUBCUTANEOUS, 10 UG, 2/D, SUBCUTANEOUS, 10 UG, DAILY (1/D), SUBCUTANEOUS
     Route: 058
     Dates: start: 20080401
  4. GLUCOTROL [Concomitant]
  5. VYTORIN [Concomitant]
  6. LYRICA [Concomitant]
  7. FUROSEMIDE (FUROSEMIDE) [Concomitant]
  8. PLAVIX [Concomitant]
  9. DIOVAN (HYDROCHLOROTHIAZIDE, VALSARTAN) [Concomitant]
  10. TRICOR [Concomitant]
  11. KLOR-CON [Concomitant]

REACTIONS (5)
  - BLOOD GLUCOSE ABNORMAL [None]
  - CARDIAC DISORDER [None]
  - DRUG INEFFECTIVE [None]
  - MYALGIA [None]
  - STOMACH DISCOMFORT [None]
